FAERS Safety Report 5230298-1 (Version None)
Quarter: 2007Q1

REPORT INFORMATION
  Report Type: 
  Country: None (occurrence: None)
  Receive Date: 20070201
  Receipt Date: 20070116
  Transmission Date: 20070707
  Serious: Yes (Death)
  Sender: FDA-Public Use
  Company Number: 2006JP000595

PATIENT
  Age: 36 Year
  Sex: Male
  Weight: 80 kg

DRUGS (14)
  1. PROGRAF [Suspect]
     Indication: BONE MARROW TRANSPLANT
     Dosage: 2 MG, BID, ORAL
     Route: 048
     Dates: start: 20041209, end: 20050916
  2. PREDNISOLONE [Suspect]
     Indication: BONE MARROW TRANSPLANT
     Dosage: 11.67 MG, TID, ORAL
     Route: 048
     Dates: start: 20041227, end: 20050922
  3. CELLCEPT [Suspect]
     Indication: BONE MARROW TRANSPLANT
     Dosage: 1 G, BID, ORAL
     Route: 048
     Dates: start: 20040505, end: 20050916
  4. BAKTAR (SULFAMETHOXAZOLE, TRIMETHOPRIM) TABLET [Concomitant]
  5. POLYGLOBIN (IMMUNOGLOBULIN HUMAN NORMAL, MALTOSE) [Concomitant]
  6. FIRSTCIN (CEFOZOPRAN HYDROCHLORIDE) [Concomitant]
  7. FUNGUARD (MICAFUNGIN) [Concomitant]
  8. NEUPOGEN [Concomitant]
  9. NEO-MINOPHAGEN (GLYCYRRHIZIC ACID, AMMONIUM SALT) [Concomitant]
  10. VFEND [Concomitant]
  11. CEFTAZIDIME [Concomitant]
  12. TARGOCID [Concomitant]
  13. ZOVIRAX [Concomitant]
  14. METHOTREXATE [Concomitant]

REACTIONS (4)
  - ENCEPHALITIS CYTOMEGALOVIRUS [None]
  - HEPATIC FUNCTION ABNORMAL [None]
  - PAIN [None]
  - PNEUMONIA [None]
